FAERS Safety Report 22398937 (Version 1)
Quarter: 2023Q2

REPORT INFORMATION
  Report Type: Spontaneous
  Country: CN (occurrence: CN)
  Receive Date: 20230602
  Receipt Date: 20230602
  Transmission Date: 20230722
  Serious: Yes (Other)
  Sender: FDA-Public Use
  Company Number: CN-ELI_LILLY_AND_COMPANY-CN202305015903

PATIENT
  Age: 87 Year
  Sex: Male

DRUGS (15)
  1. BARICITINIB [Suspect]
     Active Substance: BARICITINIB
     Indication: Immunology test
     Dosage: 2 MG, DAILY
     Route: 048
     Dates: end: 20230104
  2. BARICITINIB [Suspect]
     Active Substance: BARICITINIB
     Indication: COVID-19
  3. DEXAMETHASONE [Concomitant]
     Active Substance: DEXAMETHASONE
     Indication: Inflammation
     Dosage: 5 MG, DAILY
     Route: 041
  4. DEXAMETHASONE [Concomitant]
     Active Substance: DEXAMETHASONE
     Indication: COVID-19
  5. OXYGEN [Concomitant]
     Active Substance: OXYGEN
     Indication: Oxygen saturation
     Dosage: UNK, UNKNOWN
     Route: 065
  6. MOXIFLOXACIN HYDROCHLORIDE [Concomitant]
     Active Substance: MOXIFLOXACIN HYDROCHLORIDE
     Indication: Therapy responder
     Dosage: UNK, UNKNOWN
     Route: 065
  7. SODIUM CHLORIDE [Concomitant]
     Active Substance: SODIUM CHLORIDE
     Indication: Therapy responder
     Dosage: 400 MG, DAILY
     Route: 041
  8. SODIUM CHLORIDE [Concomitant]
     Active Substance: SODIUM CHLORIDE
     Indication: Infusion
     Dosage: UNK, UNKNOWN
     Route: 065
  9. ENOXAPARIN SODIUM [Concomitant]
     Active Substance: ENOXAPARIN SODIUM
     Indication: Coagulopathy
     Dosage: 4000 U, DAILY
     Route: 058
  10. FU FANG XIAN ZHU LI [Concomitant]
     Indication: Productive cough
     Dosage: UNK, BID
     Route: 048
  11. AMBROXOL [Concomitant]
     Active Substance: AMBROXOL
     Indication: Productive cough
     Dosage: 30 MG, BID
     Route: 041
  12. BUDESONIDE [Concomitant]
     Active Substance: BUDESONIDE
     Indication: Inhalation therapy
     Dosage: 2 ML, BID
     Route: 055
  13. TOLVAPTAN [Concomitant]
     Active Substance: TOLVAPTAN
     Indication: Diuretic therapy
     Dosage: 15 MG, DAILY
     Route: 048
  14. DEXTROSE [Concomitant]
     Active Substance: DEXTROSE\DEXTROSE MONOHYDRATE
     Indication: Infusion
     Dosage: UNK, UNKNOWN
     Route: 065
  15. FUROSEMIDE [Concomitant]
     Active Substance: FUROSEMIDE
     Indication: Diuretic therapy
     Dosage: UNK, UNKNOWN
     Route: 065

REACTIONS (1)
  - Acute kidney injury [Recovered/Resolved]
